FAERS Safety Report 6533876-2 (Version None)
Quarter: 2010Q1

REPORT INFORMATION
  Report Type: 
  Country: None (occurrence: None)
  Receive Date: 20100111
  Receipt Date: 20090728
  Transmission Date: 20100710
  Serious: No
  Sender: FDA-Public Use
  Company Number: US-ABBOTT-09P-163-0588058-00

PATIENT
  Age: 59 Year
  Sex: Female

DRUGS (5)
  1. VICODIN [Suspect]
     Indication: PAIN
     Dates: start: 20020101
  2. TYLENOL ARTHRITIS EXTENDED RELIEF [Suspect]
     Indication: ARTHRALGIA
     Route: 048
     Dates: start: 20020101
  3. EXTRA STRENGTH TYLENOL PM [Suspect]
     Indication: INSOMNIA
     Dosage: 2 DOSES
     Route: 048
     Dates: start: 20020101
  4. XALATAN [Concomitant]
     Indication: DRUG USE FOR UNKNOWN INDICATION
     Dosage: 1 DROP IN EACH EYE
     Route: 047
  5. OXYBUTYNIN CHLORIDE [Concomitant]
     Indication: URINARY RETENTION

REACTIONS (2)
  - DRUG ADMINISTRATION ERROR [None]
  - INTENTIONAL DRUG MISUSE [None]
